FAERS Safety Report 9763151 (Version 1)
Quarter: 2013Q4

REPORT INFORMATION
  Report Type: Spontaneous
  Country: US (occurrence: US)
  Receive Date: 20131216
  Receipt Date: 20131216
  Transmission Date: 20140711
  Serious: No
  Sender: FDA-Public Use
  Company Number: US-BIOGENIDEC-2013BI104947

PATIENT
  Age: 47 Year
  Sex: Female

DRUGS (10)
  1. TECFIDERA [Suspect]
     Indication: MULTIPLE SCLEROSIS
     Route: 048
     Dates: start: 201310, end: 201310
  2. TECFIDERA [Suspect]
     Indication: MULTIPLE SCLEROSIS
     Route: 048
     Dates: start: 201310
  3. HYDROCHLORTHIAZIDE [Concomitant]
  4. CRANBERRY [Concomitant]
  5. CALCIUM [Concomitant]
  6. VITAMIN C [Concomitant]
  7. ACIDOPHILUS PROBIOTIC [Concomitant]
  8. CVS FISH OIL [Concomitant]
  9. VITAMIN D3 [Concomitant]
  10. ESTRADIOL-NORETH [Concomitant]

REACTIONS (3)
  - General symptom [Unknown]
  - Flushing [Unknown]
  - Feeling hot [Unknown]
